FAERS Safety Report 10081682 (Version 3)
Quarter: 2014Q2

REPORT INFORMATION
  Report Type: Spontaneous
  Country: IT (occurrence: None)
  Receive Date: 20140414
  Receipt Date: 20140606
  Transmission Date: 20141212
  Serious: Yes (Hospitalization)
  Sender: FDA-Public Use
  Company Number: AUR-APL-2014-04363

PATIENT
  Age: 80 Year
  Sex: Female

DRUGS (4)
  1. LEVOFLOXACIN (LEVOFLOXACIN) [Suspect]
     Indication: BRONCHITIS
     Dosage: (500 MG, 1 D)
     Route: 048
     Dates: start: 20140319, end: 20140325
  2. COUMADIN (WARFARNI SODIUM) [Suspect]
     Indication: DEEP VEIN THROMBOSIS
     Route: 048
     Dates: start: 20140314, end: 20140318
  3. ENALAPRIL MALEATE (ENALAPRIL MALEATE) [Concomitant]
  4. CLEXANE (ENOXAPARIN SODIUM) [Suspect]
     Indication: DEEP VEIN THROMBOSIS
     Dosage: (16 IU, D)
     Route: 058
     Dates: start: 20140319, end: 20140325

REACTIONS (3)
  - Blood urine [None]
  - Drug interaction [None]
  - International normalised ratio increased [None]
